FAERS Safety Report 4965831-8 (Version None)
Quarter: 2006Q2

REPORT INFORMATION
  Report Type: 
  Country: None (occurrence: None)
  Receive Date: 20060407
  Receipt Date: 20051118
  Transmission Date: 20061013
  Serious: Yes (Hospitalization)
  Sender: FDA-Public Use
  Company Number: US-BRISTOL-MYERS SQUIBB COMPANY-13187844

PATIENT
  Age: 64 Year
  Sex: Female

DRUGS (9)
  1. BLINDED: MURAGLITAZAR [Suspect]
     Indication: DIABETES MELLITUS NON-INSULIN-DEPENDENT
     Route: 048
     Dates: start: 20050525
  2. BLINDED: GLIMEPIRIDE [Suspect]
     Indication: DIABETES MELLITUS NON-INSULIN-DEPENDENT
     Route: 048
     Dates: start: 20050525
  3. METFORMIN HYDROCHLORIDE [Suspect]
     Indication: DIABETES MELLITUS NON-INSULIN-DEPENDENT
     Route: 048
     Dates: start: 20011010
  4. TARKA [Suspect]
     Dates: start: 20051017, end: 20051108
  5. ZOCOR [Concomitant]
     Dates: start: 20050322
  6. METHOTREXATE [Concomitant]
     Dates: start: 20050823
  7. DILANTIN [Concomitant]
     Dates: start: 20011010
  8. FUROSEMIDE [Concomitant]
     Dates: start: 20011010
  9. IMDUR [Concomitant]
     Dates: start: 20011010

REACTIONS (2)
  - ACUTE MYOCARDIAL INFARCTION [None]
  - ANGIONEUROTIC OEDEMA [None]
